FAERS Safety Report 14122999 (Version 2)
Quarter: 2017Q4

REPORT INFORMATION
  Report Type: Spontaneous
  Country: BR (occurrence: BR)
  Receive Date: 20171025
  Receipt Date: 20171215
  Transmission Date: 20180321
  Serious: Yes (Other)
  Sender: FDA-Public Use
  Company Number: BR-009507513-1710BRA009490

PATIENT
  Age: 31 Year
  Sex: Female
  Weight: 65 kg

DRUGS (13)
  1. IMPLANON [Suspect]
     Active Substance: ETONOGESTREL
     Indication: HORMONE THERAPY
     Dosage: 1 IMPLANT, EVERY 3 YEARS
     Route: 059
     Dates: start: 2012, end: 2015
  2. IMPLANON [Suspect]
     Active Substance: ETONOGESTREL
     Dosage: 1 IMPLANT, EVERY 3 YEARS
     Route: 059
     Dates: start: 2006, end: 2009
  3. ZOLPID [Concomitant]
     Indication: BIPOLAR DISORDER
     Dosage: 1 TABLET EVERY DAY
     Route: 048
  4. IMPLANON [Suspect]
     Active Substance: ETONOGESTREL
     Dosage: 1 IMPLANT, EVERY 3 YEARS
     Route: 059
     Dates: start: 2003, end: 2006
  5. DEPAKOTE [Concomitant]
     Active Substance: DIVALPROEX SODIUM
     Indication: BIPOLAR DISORDER
     Dosage: 1 TABLET AFTER DINNER
     Route: 048
     Dates: start: 2016
  6. IMPLANON [Suspect]
     Active Substance: ETONOGESTREL
     Dosage: UNK
  7. DIPYRONE [Concomitant]
     Active Substance: DIPYRONE
     Indication: HEADACHE
  8. IMPLANON [Suspect]
     Active Substance: ETONOGESTREL
     Indication: CONTRACEPTION
     Dosage: 1 IMPLANT
     Route: 059
     Dates: start: 20151123
  9. IMPLANON [Suspect]
     Active Substance: ETONOGESTREL
     Dosage: 1 IMPLANT, EVERY 3 YEARS
     Route: 059
     Dates: start: 2009, end: 2012
  10. IMPLANON [Suspect]
     Active Substance: ETONOGESTREL
     Dosage: 1 IMPLANT, EVERY 3 YEARS
     Route: 059
     Dates: start: 2000, end: 2003
  11. FLUCONAZOLE. [Concomitant]
     Active Substance: FLUCONAZOLE
     Indication: CANDIDA INFECTION
     Dosage: UNK
     Dates: start: 201707, end: 201707
  12. SERTRALINE HYDROCHLORIDE. [Concomitant]
     Active Substance: SERTRALINE HYDROCHLORIDE
     Indication: BIPOLAR DISORDER
     Dosage: 1 TABLET AFTER BREAKFAST
     Route: 048
     Dates: start: 201704
  13. DEPAKOTE [Concomitant]
     Active Substance: DIVALPROEX SODIUM
     Indication: BIPOLAR DISORDER
     Dosage: 1 TABLET AFTER BREAKFAST
     Route: 048
     Dates: start: 2016

REACTIONS (6)
  - Ovulation disorder [Unknown]
  - Pregnancy with implant contraceptive [Recovered/Resolved]
  - Unintended pregnancy [Recovered/Resolved]
  - Abortion spontaneous [Recovered/Resolved]
  - Product use in unapproved indication [Unknown]
  - Complication associated with device [Not Recovered/Not Resolved]

NARRATIVE: CASE EVENT DATE: 2000
